FAERS Safety Report 23579019 (Version 2)
Quarter: 2024Q2

REPORT INFORMATION
  Report Type: Spontaneous
  Country: FR (occurrence: FR)
  Receive Date: 20240229
  Receipt Date: 20240404
  Transmission Date: 20240716
  Serious: Yes (Other)
  Sender: FDA-Public Use
  Company Number: None

PATIENT
  Age: 28 Year
  Sex: Female

DRUGS (12)
  1. OLANZAPINE [Suspect]
     Active Substance: OLANZAPINE
     Indication: Acute psychosis
     Dosage: THEN INCREASED TO 30MG/DAY ON 21 JANUARY?DAILY DOSE: 30 MILLIGRAM
     Route: 048
     Dates: start: 20240119, end: 20240206
  2. POLYETHYLENE GLYCOL 4000 [Suspect]
     Active Substance: POLYETHYLENE GLYCOL 4000
     Indication: Electroconvulsive therapy
     Dosage: 2 DOSAGE FORM, UNKNOWN, MACROGOL 2 SACHETS MORNING AND NOON ?DAILY DOSE: 4 DOSAGE FORM
     Route: 048
     Dates: start: 20240124, end: 20240206
  3. SUCCINYLCHOLINE [Suspect]
     Active Substance: SUCCINYLCHOLINE
     Indication: Electroconvulsive therapy
     Dosage: 60 MG, UNKNOWN; ROA: PARENTERAL
     Dates: start: 20240124, end: 20240124
  4. SUCCINYLCHOLINE [Suspect]
     Active Substance: SUCCINYLCHOLINE
     Indication: Electroconvulsive therapy
     Dosage: 60 MG, UNKNOWN; ROA: PARENTERAL
     Dates: start: 20240126, end: 20240126
  5. SUCCINYLCHOLINE [Suspect]
     Active Substance: SUCCINYLCHOLINE
     Indication: Electroconvulsive therapy
     Dosage: 60 MG, UNKNOWN; ROA: PARENTERAL
     Dates: start: 20240129, end: 20240129
  6. SUCCINYLCHOLINE [Suspect]
     Active Substance: SUCCINYLCHOLINE
     Indication: Electroconvulsive therapy
     Dosage: 60 MG, UNKNOWN; ROA: PARENTERAL
     Dates: start: 20240202, end: 20240202
  7. CHLORPROMAZINE [Suspect]
     Active Substance: CHLORPROMAZINE
     Indication: Acute psychosis
     Dosage: DAILY DOSE: 175 MILLIGRAM
     Route: 048
     Dates: start: 202401, end: 20240206
  8. CHLORPROMAZINE [Suspect]
     Active Substance: CHLORPROMAZINE
     Indication: Acute psychosis
     Dosage: DAILY DOSE: 450 MILLIGRAM
     Route: 048
     Dates: start: 20240119, end: 20240206
  9. DIPRIVAN [Suspect]
     Active Substance: ISOPROPYL ALCOHOL\PROPOFOL
     Dates: start: 20240124
  10. DIPRIVAN [Suspect]
     Active Substance: ISOPROPYL ALCOHOL\PROPOFOL
     Dates: start: 20240126
  11. DIPRIVAN [Suspect]
     Active Substance: ISOPROPYL ALCOHOL\PROPOFOL
     Dates: start: 20240129
  12. DIPRIVAN [Suspect]
     Active Substance: ISOPROPYL ALCOHOL\PROPOFOL
     Dates: start: 20240202

REACTIONS (1)
  - Toxic skin eruption [Not Recovered/Not Resolved]

NARRATIVE: CASE EVENT DATE: 20240124
